FAERS Safety Report 9372141 (Version 1)
Quarter: 2013Q2

REPORT INFORMATION
  Report Type: Report from Study
  Country: US (occurrence: US)
  Receive Date: 20130627
  Receipt Date: 20130627
  Transmission Date: 20140414
  Serious: Yes (Death)
  Sender: FDA-Public Use
  Company Number: US-MYLANLABS-2012S1015729

PATIENT
  Age: 36 Year
  Sex: Male

DRUGS (9)
  1. CLOZAPINE TABLETS [Suspect]
     Route: 048
     Dates: start: 20110809, end: 201203
  2. CLOZAPINE TABLETS [Suspect]
     Route: 048
     Dates: start: 20110809, end: 201203
  3. OMEPRAZOLE [Concomitant]
  4. ADVAIR [Concomitant]
  5. PROVENTIL [Concomitant]
  6. DEPAKOTE [Concomitant]
  7. VISTARIL [Concomitant]
  8. BENADRYL [Concomitant]
  9. TRAZODONE [Concomitant]

REACTIONS (3)
  - Respiratory tract congestion [Unknown]
  - Hypopnoea [Unknown]
  - Death [Fatal]
